FAERS Safety Report 8475710-X (Version None)
Quarter: 2012Q2

REPORT INFORMATION
  Report Type: 
  Country: None (occurrence: None)
  Receive Date: 20120628
  Receipt Date: 20120620
  Transmission Date: 20120825
  Serious: Yes (Hospitalization)
  Sender: FDA-Public Use
  Company Number: US-GLAXOSMITHKLINE-A0982509A

PATIENT
  Age: 46 Year
  Sex: Female

DRUGS (1)
  1. FLOLAN [Suspect]
     Indication: PRODUCT USED FOR UNKNOWN INDICATION
     Dosage: 60.5NG CONTINUOUS
     Dates: start: 20071129

REACTIONS (6)
  - BRONCHITIS [None]
  - SEPSIS [None]
  - PNEUMONIA [None]
  - CATHETER SITE PAIN [None]
  - CATHETER SITE SWELLING [None]
  - CATHETER SITE ERYTHEMA [None]
